FAERS Safety Report 9349172 (Version 1)
Quarter: 2013Q2

REPORT INFORMATION
  Report Type: Spontaneous
  Country: FR (occurrence: FR)
  Receive Date: 20130614
  Receipt Date: 20130614
  Transmission Date: 20140414
  Serious: Yes (Hospitalization)
  Sender: FDA-Public Use
  Company Number: FR-UCBSA-087963

PATIENT
  Age: 81 Year
  Sex: Female

DRUGS (10)
  1. KEPPRA [Suspect]
     Indication: CONVULSION
     Route: 042
     Dates: start: 20120829, end: 20120904
  2. RIVOTRIL [Suspect]
     Indication: CONVULSION
     Dosage: DOSE: 1 MG/ML
     Route: 042
     Dates: start: 20120828, end: 20120828
  3. PARACETAMOL MACOPHARMA (NON AZ PRODUCT) [Suspect]
     Indication: PAIN
     Route: 042
     Dates: start: 20120901, end: 20120903
  4. OMEPRAZOLE [Concomitant]
     Dosage: UNKNOWN DOSE
     Dates: end: 20120913
  5. ZYPREXA [Concomitant]
     Dosage: UNKNOWN DOSE
     Dates: end: 20120904
  6. LEXOMIL [Concomitant]
     Dosage: UNKNOWN DOSE
     Dates: end: 20120904
  7. TIAPRIDAL [Concomitant]
     Dosage: UNKNOWN DOSE
     Dates: end: 20120904
  8. DEPAMIDE [Concomitant]
     Dosage: UNKNOWN DOSE
     Dates: end: 20120904
  9. NOCTAMIDE [Concomitant]
     Dosage: UNKNOWN DOSE
     Dates: end: 20120904
  10. DOLIPRANE [Concomitant]
     Indication: PAIN
     Dosage: UNKNOWN DOSE
     Route: 048
     Dates: end: 20120901

REACTIONS (4)
  - Decreased appetite [Unknown]
  - Vomiting [Unknown]
  - Gamma-glutamyltransferase increased [Unknown]
  - Aphthous stomatitis [Unknown]
